FAERS Safety Report 7829731-8 (Version None)
Quarter: 2011Q4

REPORT INFORMATION
  Report Type: 
  Country: None (occurrence: None)
  Receive Date: 20111021
  Receipt Date: 20111010
  Transmission Date: 20120403
  Serious: Yes (Other)
  Sender: FDA-Public Use
  Company Number: US-JNJFOC-20111004590

PATIENT
  Sex: Female

DRUGS (1)
  1. REMICADE [Suspect]
     Indication: COLITIS ULCERATIVE
     Route: 042
     Dates: start: 20110501

REACTIONS (9)
  - OSTEOPENIA [None]
  - THROAT IRRITATION [None]
  - BLOOD PHOSPHORUS INCREASED [None]
  - BLOOD MAGNESIUM INCREASED [None]
  - ALOPECIA [None]
  - STOOL HEAVY METAL POSITIVE [None]
  - BACTERIAL TEST POSITIVE [None]
  - INFLAMMATION [None]
  - HYPERCALCAEMIA [None]
